FAERS Safety Report 6608841-7 (Version None)
Quarter: 2010Q1

REPORT INFORMATION
  Report Type: 
  Country: None (occurrence: None)
  Receive Date: 20100301
  Receipt Date: 20100222
  Transmission Date: 20100710
  Serious: No
  Sender: FDA-Public Use
  Company Number: US-PFIZER INC-2009315233

PATIENT
  Sex: Male
  Weight: 86 kg

DRUGS (6)
  1. GLIPIZIDE [Suspect]
     Indication: TYPE 2 DIABETES MELLITUS
     Dosage: 10 MG, 2X/DAY
     Route: 048
     Dates: start: 20070101
  2. ACTOS [Concomitant]
     Dosage: UNK
     Route: 048
  3. CARVEDILOL [Concomitant]
     Dosage: UNK
     Route: 048
  4. TERAZOSIN [Concomitant]
     Dosage: UNK
     Route: 048
  5. SITAGLIPTIN [Concomitant]
     Dosage: UNK
     Route: 048
  6. PLAVIX [Concomitant]
     Dosage: UNK
     Route: 048

REACTIONS (3)
  - ASTHENIA [None]
  - BLOOD GLUCOSE FLUCTUATION [None]
  - BLOOD GLUCOSE INCREASED [None]
